FAERS Safety Report 12419389 (Version 1)
Quarter: 2016Q2

REPORT INFORMATION
  Report Type: Spontaneous
  Country: US (occurrence: None)
  Receive Date: 20160527
  Receipt Date: 20160527
  Transmission Date: 20160815
  Serious: Yes (Disabling)
  Sender: FDA-Public Use
  Company Number: None

PATIENT
  Age: 54 Year
  Sex: Female
  Weight: 142.88 kg

DRUGS (13)
  1. ZYRTEC [Concomitant]
     Active Substance: CETIRIZINE HYDROCHLORIDE
  2. FOLIC ACID. [Concomitant]
     Active Substance: FOLIC ACID
  3. PREDNISONE. [Concomitant]
     Active Substance: PREDNISONE
  4. LEVOFLOXACIN. [Suspect]
     Active Substance: LEVOFLOXACIN
     Indication: SINUSITIS
     Dates: start: 20160509, end: 20160513
  5. DANDELION TEA [Concomitant]
  6. MAGNESIUM [Concomitant]
     Active Substance: MAGNESIUM
  7. LIOTHYRONINE [Concomitant]
     Active Substance: LIOTHYRONINE
  8. PINELLA [Concomitant]
  9. LEVO THYROXINE [Concomitant]
  10. CALCIUM [Concomitant]
     Active Substance: CALCIUM
  11. BURBUR DETOX [Concomitant]
  12. VITAMIN D3 [Concomitant]
     Active Substance: CHOLECALCIFEROL
  13. METHOTREXATE [Concomitant]
     Active Substance: METHOTREXATE

REACTIONS (9)
  - Fatigue [None]
  - Headache [None]
  - Pain [None]
  - Asthenia [None]
  - Paraesthesia [None]
  - Joint stiffness [None]
  - Gait disturbance [None]
  - Pain in extremity [None]
  - Aphasia [None]

NARRATIVE: CASE EVENT DATE: 20160511
